FAERS Safety Report 5206176-0 (Version None)
Quarter: 2006Q4

REPORT INFORMATION
  Report Type: 
  Country: None (occurrence: None)
  Receive Date: 20061026
  Receipt Date: 20060923
  Transmission Date: 20070319
  Serious: No
  Sender: FDA-Public Use
  Company Number: 2006117513

PATIENT
  Age: 43 Year
  Sex: Female
  Weight: 57.6068 kg

DRUGS (1)
  1. LYRICA [Suspect]
     Indication: NERVE INJURY
     Dosage: 75 MG (75 MG, 1 IN 1 D)
     Dates: start: 20060914

REACTIONS (4)
  - DYSSTASIA [None]
  - FEELING ABNORMAL [None]
  - MUSCLE SPASMS [None]
  - PAIN [None]
